FAERS Safety Report 9618340 (Version 3)
Quarter: 2013Q4

REPORT INFORMATION
  Report Type: Spontaneous
  Country: US (occurrence: US)
  Receive Date: 20131014
  Receipt Date: 20131028
  Transmission Date: 20140711
  Serious: Yes (Life-Threatening, Hospitalization)
  Sender: FDA-Public Use
  Company Number: US-MERCK-1310USA004441

PATIENT
  Sex: Female

DRUGS (1)
  1. NOXAFIL [Suspect]
     Indication: FUNGAL INFECTION
     Dosage: UNK
     Route: 048
     Dates: start: 201301

REACTIONS (1)
  - Drug ineffective [Unknown]
